FAERS Safety Report 14438291 (Version 2)
Quarter: 2022Q1

REPORT INFORMATION
  Report Type: Spontaneous
  Country: IT (occurrence: IT)
  Receive Date: 20180125
  Receipt Date: 20220217
  Transmission Date: 20220423
  Serious: Yes (Other)
  Sender: FDA-Public Use
  Company Number: IT-AUROBINDO-AUR-APL-2013-09102

PATIENT
  Age: 8 Year
  Sex: Female

DRUGS (3)
  1. LAMOTRIGINE [Suspect]
     Active Substance: LAMOTRIGINE
     Indication: Myoclonic epilepsy
     Dosage: UNK
     Route: 065
  2. TOPIRAMATE [Suspect]
     Active Substance: TOPIRAMATE
     Indication: Myoclonic epilepsy
     Dosage: UNK, DOSAGE FORM: UNSPECIFIED
     Route: 048
  3. PHENOBARBITAL [Suspect]
     Active Substance: PHENOBARBITAL
     Indication: Myoclonic epilepsy
     Dosage: UNK, DOSAGE FORM: UNSPECIFIED
     Route: 065

REACTIONS (2)
  - Epilepsy [Unknown]
  - Drug ineffective [Unknown]
